FAERS Safety Report 14650565 (Version 1)
Quarter: 2018Q1

REPORT INFORMATION
  Report Type: Spontaneous
  Country: IS (occurrence: IS)
  Receive Date: 20180316
  Receipt Date: 20180316
  Transmission Date: 20180509
  Serious: Yes (Life-Threatening, Hospitalization)
  Sender: FDA-Public Use
  Company Number: IS-TEVA-2018-IS-869352

PATIENT
  Age: 63 Year
  Sex: Female
  Weight: 99 kg

DRUGS (8)
  1. SIMVASTATIN ACTAVIS 40 MG, FILMUH??A?AR T?FLUR [Concomitant]
  2. LEVEMIR FLEXPEN 100 UNITS/ML [Concomitant]
     Dosage: 48 UNITS PER DAY
  3. PRESMIN 50 MG FILMUH??A?AR T?FLUR [Concomitant]
     Dosage: 100 MILLIGRAM DAILY; 100 MG ONCE DAILY
  4. METFORMIN ACTAVIS 1000 MG FILMTABLETTEN [Suspect]
     Active Substance: METFORMIN HYDROCHLORIDE
     Indication: DIABETES MELLITUS
     Dosage: 1000 MG TWICE DAILY
  5. AMARYL 2 MG TAFLA [Concomitant]
  6. VICTOZA [Concomitant]
     Active Substance: LIRAGLUTIDE
     Dosage: 1.8 MILLIGRAM DAILY; 1,8 MG PER DAY
  7. VENTOLIN DISKUS 200 MICROGRAMS [Concomitant]
     Dosage: BY NEEDS
  8. FLIXOTIDE DISKUS 250 MICROGRAMMES/DOSE [Concomitant]
     Dosage: 2 SUCTIONS TWICE DAILY

REACTIONS (5)
  - Hyperkalaemia [Recovering/Resolving]
  - Acute kidney injury [Recovering/Resolving]
  - Lactic acidosis [Recovering/Resolving]
  - Diarrhoea [Recovering/Resolving]
  - Vomiting [Recovering/Resolving]
